FAERS Safety Report 8595181-2 (Version None)
Quarter: 2012Q3

REPORT INFORMATION
  Report Type: 
  Country: None (occurrence: None)
  Receive Date: 20120815
  Receipt Date: 20120719
  Transmission Date: 20120928
  Serious: Yes (Other)
  Sender: FDA-Public Use
  Company Number: CN-ASTRAZENECA-2012SE57195

PATIENT
  Sex: Female
  Weight: 62 kg

DRUGS (2)
  1. FELODIPINE [Suspect]
     Indication: HYPERTENSION
     Route: 048
     Dates: start: 20100325, end: 20100325
  2. TONGSAIMAI [Concomitant]
     Indication: HYPERTENSION
     Dates: start: 20100325, end: 20100325

REACTIONS (4)
  - BRADYCARDIA [None]
  - CHILLS [None]
  - PALPITATIONS [None]
  - FEELING COLD [None]
